FAERS Safety Report 24253664 (Version 1)
Quarter: 2024Q3

REPORT INFORMATION
  Report Type: Spontaneous
  Country: FR (occurrence: FR)
  Receive Date: 20240827
  Receipt Date: 20240827
  Transmission Date: 20241016
  Serious: Yes (Other)
  Sender: HELSINN HEALTHCARE
  Company Number: FR-HBP-2024FR031127

PATIENT
  Age: 60 Year
  Sex: Female

DRUGS (1)
  1. MECHLORETHAMINE HYDROCHLORIDE [Suspect]
     Active Substance: MECHLORETHAMINE HYDROCHLORIDE
     Indication: Cutaneous lymphoma
     Dosage: UNK, QD
     Route: 065

REACTIONS (2)
  - Eczema [Unknown]
  - Off label use [Unknown]
